FAERS Safety Report 5143447-0 (Version None)
Quarter: 2006Q4

REPORT INFORMATION
  Report Type: 
  Country: None (occurrence: None)
  Receive Date: 20061103
  Receipt Date: 20061029
  Transmission Date: 20070319
  Serious: Yes (Hospitalization)
  Sender: FDA-Public Use
  Company Number: KW-MERCK-0610USA14295

PATIENT
  Age: 1 Year
  Sex: Male
  Weight: 10 kg

DRUGS (2)
  1. SINGULAIR [Suspect]
     Indication: ASTHMA
     Route: 048
     Dates: start: 20061001, end: 20061027
  2. BUDESONIDE [Concomitant]
     Indication: ASTHMA
     Route: 055
     Dates: start: 20061001

REACTIONS (1)
  - ENCEPHALOPATHY [None]
